FAERS Safety Report 8536839-0 (Version None)
Quarter: 2012Q3

REPORT INFORMATION
  Report Type: 
  Country: None (occurrence: None)
  Receive Date: 20120725
  Receipt Date: 20120718
  Transmission Date: 20120928
  Serious: Yes (Other)
  Sender: FDA-Public Use
  Company Number: CA-ELI_LILLY_AND_COMPANY-CA201207006331

PATIENT
  Sex: Male

DRUGS (3)
  1. CIALIS [Suspect]
     Indication: ERECTILE DYSFUNCTION
     Dosage: 2.5 MG, QD
  2. CIALIS [Suspect]
     Dosage: 1.25 MG, QD
  3. PROSCAR [Concomitant]
     Indication: PROSTATITIS
     Dosage: 1 DF, UNKNOWN

REACTIONS (3)
  - PROSTATIC PAIN [None]
  - THROMBOSIS [None]
  - DRUG INTOLERANCE [None]
